FAERS Safety Report 18608846 (Version 1)
Quarter: 2020Q4

REPORT INFORMATION
  Report Type: Spontaneous
  Country: US (occurrence: US)
  Receive Date: 20201213
  Receipt Date: 20201213
  Transmission Date: 20210114
  Serious: No
  Sender: FDA-Public Use
  Company Number: US-009507513-2012USA004495

PATIENT
  Age: 57 Year
  Sex: Female

DRUGS (1)
  1. IMPLANON [Suspect]
     Active Substance: ETONOGESTREL
     Dosage: MORE THAN 12 YEARS AGO; 1 IMPLANT, UNKNOWN
     Route: 059

REACTIONS (1)
  - Incorrect product administration duration [Unknown]
